FAERS Safety Report 5824270-8 (Version None)
Quarter: 2008Q3

REPORT INFORMATION
  Report Type: 
  Country: None (occurrence: None)
  Receive Date: 20080728
  Receipt Date: 20080715
  Transmission Date: 20090109
  Serious: Yes (Hospitalization)
  Sender: FDA-Public Use
  Company Number: US-SOLVAY-00208003250

PATIENT
  Age: 19657 Day
  Sex: Female
  Weight: 58.64 kg

DRUGS (3)
  1. SLV350 (CONJUGATED ESTROGENS) [Suspect]
     Indication: HORMONE REPLACEMENT THERAPY
     Dosage: DAILY DOSE: 1.25 MILLIGRAM(S)
     Route: 048
     Dates: start: 20080530, end: 20080530
  2. SLV350 (CONJUGATED ESTROGENS) [Suspect]
     Dosage: DAILY DOSE: 1.25 MILLIGRAM(S)
     Route: 048
     Dates: start: 20080628, end: 20080628
  3. PREMARIN [Suspect]
     Indication: HORMONE REPLACEMENT THERAPY
     Dosage: DAILY DOSE: 1.25 MILLIGRAM(S)
     Route: 048
     Dates: start: 20080614, end: 20080614

REACTIONS (1)
  - KIDNEY INFECTION [None]
